FAERS Safety Report 10374416 (Version 3)
Quarter: 2014Q4

REPORT INFORMATION
  Report Type: Spontaneous
  Country: FR (occurrence: FR)
  Receive Date: 20140811
  Receipt Date: 20141003
  Transmission Date: 20150528
  Serious: Yes (Hospitalization)
  Sender: FDA-Public Use
  Company Number: FR-IROKO PRODUCTS LTD-FR-I09001-14-00166

PATIENT
  Age: 92 Year
  Sex: Male

DRUGS (6)
  1. INDOCID 25 MG, G?LULE [Suspect]
     Active Substance: INDOMETHACIN
     Indication: TOOTHACHE
     Route: 048
     Dates: start: 20140629, end: 20140703
  2. LASILIX [Concomitant]
     Active Substance: FUROSEMIDE
     Indication: PRODUCT USED FOR UNKNOWN INDICATION
     Route: 065
  3. XATRAL [Concomitant]
     Active Substance: ALFUZOSIN
     Indication: PRODUCT USED FOR UNKNOWN INDICATION
     Route: 065
  4. KARDEGIC [Suspect]
     Active Substance: ASPIRIN LYSINE
     Indication: PRODUCT USED FOR UNKNOWN INDICATION
     Route: 048
     Dates: end: 20140709
  5. PERMIXON [Concomitant]
     Active Substance: SAW PALMETTO
     Indication: PRODUCT USED FOR UNKNOWN INDICATION
     Route: 065
  6. OMEPRAZOLE. [Concomitant]
     Active Substance: OMEPRAZOLE
     Indication: PRODUCT USED FOR UNKNOWN INDICATION
     Route: 065

REACTIONS (5)
  - Asthenia [Recovered/Resolved]
  - Blood pressure systolic increased [None]
  - Blood creatinine increased [None]
  - Melaena [Recovered/Resolved]
  - Haemoglobin decreased [None]

NARRATIVE: CASE EVENT DATE: 20140704
